FAERS Safety Report 7709302-4 (Version None)
Quarter: 2011Q3

REPORT INFORMATION
  Report Type: 
  Country: None (occurrence: None)
  Receive Date: 20110825
  Receipt Date: 20110609
  Transmission Date: 20111222
  Serious: No
  Sender: FDA-Public Use
  Company Number: US-TYCO HEALTHCARE/MALLINCKRODT-T201101081

PATIENT
  Sex: Female

DRUGS (3)
  1. HYDROCODONE BITARTRATE [Concomitant]
     Indication: PAIN IN EXTREMITY
     Dosage: UNK
     Dates: end: 20110401
  2. AMBIEN [Concomitant]
  3. FENTANYL-100 [Suspect]
     Indication: PROCEDURAL PAIN
     Dosage: 25 UG/HR, EVERY 72 HOURS
     Route: 062
     Dates: start: 20110401, end: 20110516

REACTIONS (4)
  - INSOMNIA [None]
  - CONSTIPATION [None]
  - DRY MOUTH [None]
  - DECREASED APPETITE [None]
